FAERS Safety Report 10016842 (Version 1)
Quarter: 2014Q1

REPORT INFORMATION
  Report Type: Spontaneous
  Country: US (occurrence: US)
  Receive Date: 20140318
  Receipt Date: 20140318
  Transmission Date: 20141002
  Serious: Yes (Other)
  Sender: FDA-Public Use
  Company Number: US-ROCHE-1366494

PATIENT
  Age: 69 Year
  Sex: Female

DRUGS (6)
  1. XOLAIR [Suspect]
     Indication: ASTHMA
     Route: 058
     Dates: start: 2012
  2. SPIRIVA [Concomitant]
  3. ADVAIR [Concomitant]
  4. SINGULAIR [Concomitant]
  5. ALBUTEROL [Concomitant]
  6. DALIRESP [Concomitant]

REACTIONS (2)
  - Asthma [Recovered/Resolved]
  - Nasopharyngitis [Recovered/Resolved]
